FAERS Safety Report 7092404-6 (Version None)
Quarter: 2010Q4

REPORT INFORMATION
  Report Type: 
  Country: None (occurrence: None)
  Receive Date: 20101110
  Receipt Date: 20101102
  Transmission Date: 20110411
  Serious: No
  Sender: FDA-Public Use
  Company Number: US-BIOGENIDEC-2010BI038123

PATIENT
  Sex: Male

DRUGS (1)
  1. AVONEX [Suspect]
     Indication: MULTIPLE SCLEROSIS
     Route: 030
     Dates: start: 20100501

REACTIONS (10)
  - BACK PAIN [None]
  - BODY TEMPERATURE INCREASED [None]
  - BRONCHITIS [None]
  - HEADACHE [None]
  - INFLUENZA LIKE ILLNESS [None]
  - MALAISE [None]
  - RESPIRATORY TRACT CONGESTION [None]
  - SEASONAL ALLERGY [None]
  - UPPER RESPIRATORY TRACT CONGESTION [None]
  - VASODILATATION [None]
